FAERS Safety Report 5471442-0 (Version None)
Quarter: 2007Q3

REPORT INFORMATION
  Report Type: 
  Country: None (occurrence: None)
  Receive Date: 20070928
  Receipt Date: 20061114
  Transmission Date: 20080115
  Serious: No
  Sender: FDA-Public Use
  Company Number: US-BRISTOL-MYERS SQUIBB COMPANY-13546247

PATIENT
  Age: 76 Year
  Sex: Male

DRUGS (10)
  1. DEFINITY [Suspect]
     Indication: ECHOCARDIOGRAM
     Route: 042
  2. SODIUM CHLORIDE 0.9% [Concomitant]
     Indication: ECHOCARDIOGRAM
     Route: 042
  3. LEVOFLOXACIN [Concomitant]
  4. ZOCOR [Concomitant]
  5. ALTACE [Concomitant]
  6. LOPID [Concomitant]
  7. ASPIRIN [Concomitant]
  8. SOTALOL HYDROCHLORIDE [Concomitant]
  9. SLOW-MAG [Concomitant]
  10. GLYBURIDE [Concomitant]

REACTIONS (2)
  - BACK PAIN [None]
  - DIZZINESS [None]
